FAERS Safety Report 5742153-9 (Version None)
Quarter: 2008Q2

REPORT INFORMATION
  Report Type: 
  Country: None (occurrence: None)
  Receive Date: 20080519
  Receipt Date: 20080509
  Transmission Date: 20081010
  Serious: Yes (Life-Threatening, Hospitalization, Other)
  Sender: FDA-Public Use
  Company Number: US-BAYER-200818491NA

PATIENT
  Age: 65 Year
  Sex: Male
  Weight: 109 kg

DRUGS (22)
  1. SORAFENIB [Suspect]
     Indication: RENAL CELL CARCINOMA
     Dosage: TOTAL DAILY DOSE: 800 MG  UNIT DOSE: 200 MG
     Route: 048
     Dates: start: 20070823, end: 20071202
  2. ZOMETA [Concomitant]
     Dates: start: 20070611
  3. ZOMETA [Concomitant]
     Dates: start: 20080207
  4. TOPROL-XL [Concomitant]
     Indication: HYPERTENSION
     Dosage: TOTAL DAILY DOSE: 25 MG
     Route: 048
  5. DEXAMETHASONE [Concomitant]
     Indication: METASTASES TO SPINE
     Dosage: TOTAL DAILY DOSE: 8 MG
     Route: 048
  6. DEXAMETHASONE [Concomitant]
     Dosage: TOTAL DAILY DOSE: 4 MG
     Route: 048
  7. COUMADIN [Concomitant]
     Indication: THROMBOSIS
     Dosage: TOTAL DAILY DOSE: 2.5 MG
     Route: 048
  8. COUMADIN [Concomitant]
     Dosage: TOTAL DAILY DOSE: 5 MG
     Route: 048
  9. COUMADIN [Concomitant]
  10. PROTONIX [Concomitant]
     Dosage: TOTAL DAILY DOSE: 40 MG
     Route: 048
  11. MORPHINE SULFATE [Concomitant]
     Dosage: TOTAL DAILY DOSE: 60 MG
     Route: 048
  12. MORPHINE SULFATE [Concomitant]
     Dosage: TOTAL DAILY DOSE: 90 MG
     Route: 048
  13. ACETAMINOPHEN AND HYDROCODONE BITARTRATE [Concomitant]
     Indication: BREAKTHROUGH PAIN
  14. LOVENOX [Concomitant]
     Indication: PULMONARY THROMBOSIS
     Dosage: TOTAL DAILY DOSE: 210 MG
     Route: 058
  15. METOPROLOL TARTRATE [Concomitant]
     Dosage: TOTAL DAILY DOSE: 50 MG
     Route: 048
  16. THERAGRAN MULTIVITAMIN [Concomitant]
     Indication: MALNUTRITION
  17. PRILOSEC [Concomitant]
     Indication: GASTROOESOPHAGEAL REFLUX DISEASE
     Dosage: TOTAL DAILY DOSE: 20 MG
     Route: 048
  18. CENTRUM [Concomitant]
  19. IRON [Concomitant]
     Dosage: TOTAL DAILY DOSE: 650 MG
  20. DULCOLAX [Concomitant]
  21. MORPHINE SULFATE [Concomitant]
  22. VICODIN [Concomitant]
     Route: 048

REACTIONS (4)
  - INTESTINAL PERFORATION [None]
  - PERITONITIS [None]
  - PNEUMONIA [None]
  - SEPSIS [None]
